FAERS Safety Report 24031924 (Version 1)
Quarter: 2024Q2

REPORT INFORMATION
  Report Type: Spontaneous
  Country: IN (occurrence: IN)
  Receive Date: 20240629
  Receipt Date: 20240629
  Transmission Date: 20240716
  Serious: Yes (Death, Hospitalization, Other)
  Sender: FDA-Public Use
  Company Number: IN-AMGEN-INDSP2024127150

PATIENT
  Age: 50 Year
  Sex: Female

DRUGS (8)
  1. APREMILAST [Suspect]
     Active Substance: APREMILAST
     Indication: Pemphigus
     Dosage: 30 MILLIGRAM, BID
     Route: 048
  2. APREMILAST [Suspect]
     Active Substance: APREMILAST
     Indication: Off label use
  3. TENOFOVIR [Concomitant]
     Active Substance: TENOFOVIR
     Dosage: 300 MILLIGRAM
     Dates: start: 201408
  4. TENOFOVIR [Concomitant]
     Active Substance: TENOFOVIR
     Dosage: 300 MILLIGRAM
     Dates: start: 202101
  5. LAMIVUDINE [Concomitant]
     Active Substance: LAMIVUDINE
     Dosage: 300 MILLIGRAM
     Dates: start: 201408
  6. LAMIVUDINE [Concomitant]
     Active Substance: LAMIVUDINE
     Dosage: 300 MILLIGRAM
     Dates: start: 202101
  7. EFAVIRENZ [Concomitant]
     Active Substance: EFAVIRENZ
     Dosage: 600 MILLIGRAM
     Dates: start: 201408
  8. DOLUTEGRAVIR [Concomitant]
     Active Substance: DOLUTEGRAVIR
     Dosage: 50 MILLIGRAM
     Dates: start: 202101

REACTIONS (9)
  - Sepsis [Fatal]
  - Metabolic acidosis [Fatal]
  - Prerenal failure [Fatal]
  - Cardiac arrest [Fatal]
  - Pemphigus [Unknown]
  - Blood urea increased [Unknown]
  - Hepatic enzyme increased [Unknown]
  - Enterococcal infection [Unknown]
  - Off label use [Unknown]
